FAERS Safety Report 12396285 (Version 1)
Quarter: 2016Q2

REPORT INFORMATION
  Report Type: Report from Study
  Country: CH (occurrence: CH)
  Receive Date: 20160524
  Receipt Date: 20160524
  Transmission Date: 20160815
  Serious: Yes (Other)
  Sender: FDA-Public Use
  Company Number: CH-ACCORD-040494

PATIENT
  Age: 87 Year

DRUGS (6)
  1. METHOTREXATE [Suspect]
     Active Substance: METHOTREXATE
     Indication: SKIN CANCER METASTATIC
  2. FOLINIC ACID [Concomitant]
     Active Substance: LEUCOVORIN
     Dosage: 9 TIMES?STARTED 12 H AFTER THE ADMINISTRATION OF METHOTREXATE
  3. BLEOMYCIN [Suspect]
     Active Substance: BLEOMYCIN SULFATE
     Indication: SKIN CANCER METASTATIC
  4. CISPLATIN. [Suspect]
     Active Substance: CISPLATIN
     Indication: SKIN CANCER METASTATIC
  5. DEXAMETHASONE. [Concomitant]
     Active Substance: DEXAMETHASONE
     Indication: ANTIEMETIC SUPPORTIVE CARE
  6. FLUOROURACIL. [Suspect]
     Active Substance: FLUOROURACIL
     Indication: SKIN CANCER METASTATIC

REACTIONS (1)
  - Renal failure [Unknown]
